FAERS Safety Report 6045354-8 (Version None)
Quarter: 2009Q1

REPORT INFORMATION
  Report Type: 
  Country: None (occurrence: None)
  Receive Date: 20090121
  Receipt Date: 20090113
  Transmission Date: 20090719
  Serious: Yes (Hospitalization, Other)
  Sender: FDA-Public Use
  Company Number: FR-ASTRAZENECA-2008CG01448

PATIENT
  Age: 23159 Day
  Sex: Male
  Weight: 95 kg

DRUGS (4)
  1. SYMBICORT [Suspect]
     Indication: ASTHMA
     Dosage: 320/9 UG ONE OR TWO INHALATIONS DAILY
     Route: 055
     Dates: start: 20020111
  2. NASACORT [Concomitant]
     Dates: end: 20080901
  3. SINGULAIR [Concomitant]
     Indication: ASTHMA
     Dates: start: 20080929
  4. VENTOLIN [Concomitant]
     Indication: ASTHMA

REACTIONS (1)
  - ADRENAL MASS [None]
